FAERS Safety Report 10102998 (Version 1)
Quarter: 2014Q2

REPORT INFORMATION
  Report Type: Spontaneous
  Country: BG (occurrence: BG)
  Receive Date: 20140424
  Receipt Date: 20140424
  Transmission Date: 20141212
  Serious: Yes (Other)
  Sender: FDA-Public Use
  Company Number: PHHY2014BG049279

PATIENT
  Sex: Male

DRUGS (1)
  1. AMOKSIKLAV [Suspect]

REACTIONS (3)
  - Premature baby [Unknown]
  - Oxygen saturation decreased [Unknown]
  - Foetal exposure during pregnancy [Unknown]
